FAERS Safety Report 8246229-6 (Version None)
Quarter: 2012Q1

REPORT INFORMATION
  Report Type: 
  Country: None (occurrence: None)
  Receive Date: 20120330
  Receipt Date: 20100729
  Transmission Date: 20120608
  Serious: Yes (Hospitalization)
  Sender: FDA-Public Use
  Company Number: US-MYLANLABS-2010S1014008

PATIENT
  Age: 23 Year
  Sex: Male

DRUGS (7)
  1. COENZYME Q10 [Concomitant]
  2. PREDNISONE TAB [Suspect]
     Indication: ASTHMA
     Route: 048
     Dates: start: 20100708, end: 20100710
  3. PREDNISONE TAB [Suspect]
     Route: 048
     Dates: start: 20100701, end: 20100715
  4. DEPAKOTE ER [Concomitant]
  5. LEVOCARNITINE [Concomitant]
  6. ALBUTEROL SULATE [Suspect]
     Indication: ASTHMA
     Route: 055
     Dates: start: 20100609, end: 20100706
  7. PREDNISONE TAB [Suspect]
     Route: 048
     Dates: start: 20100711, end: 20100701

REACTIONS (5)
  - SUPRAVENTRICULAR TACHYCARDIA [None]
  - ASTHMA [None]
  - DYSPNOEA [None]
  - DRUG INEFFECTIVE [None]
  - HEART RATE INCREASED [None]
